FAERS Safety Report 7020253-3 (Version None)
Quarter: 2010Q3

REPORT INFORMATION
  Report Type: 
  Country: None (occurrence: None)
  Receive Date: 20100924
  Receipt Date: 20100913
  Transmission Date: 20110219
  Serious: Yes (Hospitalization)
  Sender: FDA-Public Use
  Company Number: 0213322

PATIENT

DRUGS (1)
  1. TACHOSIL [Suspect]
     Indication: SUTURE INSERTION
     Dosage: 1 DOSAGE FORMS

REACTIONS (1)
  - ADHESION [None]
